FAERS Safety Report 9307738 (Version 1)
Quarter: 2013Q2

REPORT INFORMATION
  Report Type: Spontaneous
  Country: US (occurrence: US)
  Receive Date: 20130524
  Receipt Date: 20130524
  Transmission Date: 20140414
  Serious: Yes (Hospitalization)
  Sender: FDA-Public Use
  Company Number: US-BAYER-2013-062997

PATIENT
  Age: 91 Year
  Sex: Male

DRUGS (8)
  1. PARACETAMOL + PHENYLEPHRINE + DEXTROMETHORPHAN + DOXYLAMINE [Suspect]
     Indication: NASOPHARYNGITIS
     Dosage: ACETAMINOPHEN 650 MG, DOXYLAMINE SUCCINATE 12.5 MG AND DEXTROMETHORPHAN HBR 30 MG
  2. AMLODIPINE [Concomitant]
     Dosage: DAILY DOSE 5 MG
  3. DOXAZOSIN [Concomitant]
     Dosage: DAILY DOSE 4 MG
  4. ALLOPURINOL [Concomitant]
     Dosage: DAILY DOSE 300 MG
  5. SIMVASTATIN [Concomitant]
     Dosage: DAILY DOSE 40 MG
  6. CLOPIDOGREL [Concomitant]
     Dosage: DAILY DOSE 75 MG
  7. ASA [Concomitant]
     Dosage: DAILY DOSE 81 MG
  8. OMEPRAZOLE [Concomitant]
     Dosage: DAILY DOSE 20 MG

REACTIONS (3)
  - Confusional state [Recovered/Resolved]
  - Abasia [Recovered/Resolved]
  - Incontinence [Recovered/Resolved]
